FAERS Safety Report 5221285-8 (Version None)
Quarter: 2007Q1

REPORT INFORMATION
  Report Type: 
  Country: None (occurrence: None)
  Receive Date: 20061201
  Receipt Date: 20061201
  Transmission Date: 20070707
  Serious: No
  Sender: FDA-Public Use
  Company Number: 2006PV017173

PATIENT
  Age: 54 Year
  Sex: Female
  Weight: 100.2449 kg

DRUGS (7)
  1. BYETTA [Suspect]
     Indication: DIABETES MELLITUS NON-INSULIN-DEPENDENT
     Dosage: SEE IMAGE
     Route: 058
     Dates: start: 20060101, end: 20060301
  2. BYETTA [Suspect]
     Indication: DIABETES MELLITUS NON-INSULIN-DEPENDENT
     Dosage: SEE IMAGE
     Route: 058
     Dates: start: 20060704
  3. HUMALOG [Concomitant]
  4. HUMULIN N [Concomitant]
  5. ACTOS /USA/ [Concomitant]
  6. ADVAIR DISKUS 100/50 [Concomitant]
  7. XOPENEX [Concomitant]

REACTIONS (6)
  - ANXIETY [None]
  - ASTHENIA [None]
  - BLOOD GLUCOSE DECREASED [None]
  - DIZZINESS [None]
  - HEADACHE [None]
  - NAUSEA [None]
